FAERS Safety Report 17101298 (Version 2)
Quarter: 2020Q2

REPORT INFORMATION
  Report Type: Spontaneous
  Country: US (occurrence: US)
  Receive Date: 20191202
  Receipt Date: 20200609
  Transmission Date: 20200713
  Serious: No
  Sender: FDA-Public Use
  Company Number: US-SA-2019SA331934

PATIENT

DRUGS (3)
  1. DUPIXENT [Suspect]
     Active Substance: DUPILUMAB
     Dosage: 300 MG, QOW
     Route: 058
     Dates: start: 20191111
  2. DUPIXENT [Suspect]
     Active Substance: DUPILUMAB
     Indication: PRURIGO
     Dosage: 600 MG, 1X
     Route: 058
     Dates: start: 201908, end: 201908
  3. DUPIXENT [Suspect]
     Active Substance: DUPILUMAB
     Dosage: 300 MG, QOW
     Route: 058

REACTIONS (2)
  - Nervous system disorder [Unknown]
  - Rebound eczema [Not Recovered/Not Resolved]

NARRATIVE: CASE EVENT DATE: 2019
